FAERS Safety Report 9364213 (Version 2)
Quarter: 2013Q3

REPORT INFORMATION
  Report Type: Spontaneous
  Country: FR (occurrence: FR)
  Receive Date: 20130624
  Receipt Date: 20130711
  Transmission Date: 20140515
  Serious: Yes (Other)
  Sender: FDA-Public Use
  Company Number: FR-TEVA-414184ISR

PATIENT
  Age: 15 Year
  Sex: Female

DRUGS (2)
  1. AMOXICILLIN TEVA 500 MG [Suspect]
     Indication: URINARY TRACT INFECTION
     Route: 048
     Dates: start: 20130606, end: 20130609
  2. AMOXICILLIN TEVA 500 MG [Suspect]
     Indication: ACUTE TONSILLITIS

REACTIONS (3)
  - Rectal haemorrhage [Unknown]
  - Muscle spasms [Unknown]
  - Diarrhoea [Recovered/Resolved]
